FAERS Safety Report 19007121 (Version 2)
Quarter: 2022Q4

REPORT INFORMATION
  Report Type: Spontaneous
  Country: US (occurrence: US)
  Receive Date: 20210315
  Receipt Date: 20221212
  Transmission Date: 20230113
  Serious: No
  Sender: FDA-Public Use
  Company Number: US-JNJFOC-20210318685

PATIENT
  Age: 90 Year
  Sex: Female

DRUGS (1)
  1. IMODIUM MULTI-SYMPTOM RELIEF [Suspect]
     Active Substance: DIMETHICONE\LOPERAMIDE HYDROCHLORIDE
     Indication: Adverse event
     Route: 065

REACTIONS (2)
  - Product use in unapproved indication [Unknown]
  - Product blister packaging issue [Unknown]
